FAERS Safety Report 4286785-6 (Version None)
Quarter: 2004Q1

REPORT INFORMATION
  Report Type: 
  Country: None (occurrence: None)
  Receive Date: 20040204
  Receipt Date: 20040127
  Transmission Date: 20041129
  Serious: Yes (Hospitalization)
  Sender: FDA-Public Use
  Company Number: 200410319FR

PATIENT
  Age: 65 Year
  Sex: Male

DRUGS (6)
  1. FUROSEMIDE [Suspect]
     Dosage: 40 MG/DAY PO
     Route: 048
  2. LABETALOL HYDROCHLORIDE [Suspect]
     Dosage: 400 MG QD PO
     Route: 048
  3. ALLOPURINOL [Suspect]
     Dosage: 300 MG/DAY PO
     Route: 048
  4. ASPEGIC 1000 [Suspect]
     Dosage: 250 MG/DAY PO
     Route: 048
  5. BUFLOMEDIL HYDROCHLORIDE (FONZYLANE) COATED TABLETS [Suspect]
     Dosage: 600 MG PO
     Route: 048
  6. GLYCERYL TRINITRATE (DISCOTRINE) TRANSDERMAL SYSTEM [Suspect]
     Dosage: 10 MG/DAY IND

REACTIONS (2)
  - CEREBROVASCULAR ACCIDENT [None]
  - HAEMATOMA [None]
